FAERS Safety Report 10051469 (Version 2)
Quarter: 2014Q4

REPORT INFORMATION
  Report Type: Spontaneous
  Country: US (occurrence: None)
  Receive Date: 20140328
  Receipt Date: 20141024
  Transmission Date: 20150528
  Serious: No
  Sender: FDA-Public Use
  Company Number: 2014-US-003212

PATIENT
  Age: 72 Year
  Sex: Female
  Weight: 59 kg

DRUGS (14)
  1. XYREM [Suspect]
     Active Substance: SODIUM OXYBATE
     Indication: NARCOLEPSY
     Dosage: DOSE ADJUSTMENTS, ORAL
     Route: 048
     Dates: start: 200306
  2. XYREM [Suspect]
     Active Substance: SODIUM OXYBATE
     Indication: CATAPLEXY
     Dosage: DOSE ADJUSTMENTS, ORAL
     Route: 048
     Dates: start: 200306
  3. GLUCOSAMINE [Concomitant]
     Active Substance: GLUCOSAMINE
  4. VITRON C (ASCORBIC ACID, FERROUS FUMARATE) [Concomitant]
  5. VITAMIN E (TOCOPHERYL ACID SUCCINATE) [Concomitant]
  6. LOVASTATIN. [Concomitant]
     Active Substance: LOVASTATIN
  7. RESTASIS (CICLOSPORIN) [Concomitant]
  8. MULTIVITAMIN (VITAMINS NOS) [Concomitant]
  9. COENZYME Q10 (UBIDECARENONE) [Concomitant]
  10. PROVIGIL [Concomitant]
     Active Substance: MODAFINIL
  11. S-ADENOSYL-L-METHIONINE [Concomitant]
     Active Substance: ADEMETIONINE
  12. FLONASE [Concomitant]
     Active Substance: FLUTICASONE PROPIONATE
  13. OMEGA-3 (DOCOSAHEXAENOIC ACID, ELCOSAPENTAENOIC ACID) [Concomitant]
  14. XYREM [Suspect]
     Active Substance: SODIUM OXYBATE
     Indication: SOMNOLENCE
     Dosage: DOSE ADJUSTMENTS, ORAL
     Route: 048
     Dates: start: 200306

REACTIONS (4)
  - Urinary incontinence [None]
  - Bladder neck suspension [None]
  - Vitamin D decreased [None]
  - Osteopenia [None]

NARRATIVE: CASE EVENT DATE: 2013
